FAERS Safety Report 15351141 (Version 1)
Quarter: 2018Q3

REPORT INFORMATION
  Report Type: Spontaneous
  Country: FR (occurrence: FR)
  Receive Date: 20180905
  Receipt Date: 20180905
  Transmission Date: 20181010
  Serious: Yes (Other)
  Sender: FDA-Public Use
  Company Number: FR-BAUSCH-BL-2018-024353

PATIENT
  Sex: Male
  Weight: 2.2 kg

DRUGS (1)
  1. METFORMINE [Suspect]
     Active Substance: METFORMIN HYDROCHLORIDE
     Indication: FOETAL EXPOSURE DURING PREGNANCY
     Route: 064
     Dates: start: 20171104, end: 201801

REACTIONS (1)
  - Foetal malnutrition [Not Recovered/Not Resolved]

NARRATIVE: CASE EVENT DATE: 20180715
